FAERS Safety Report 6181756-7 (Version None)
Quarter: 2009Q2

REPORT INFORMATION
  Report Type: 
  Country: None (occurrence: None)
  Receive Date: 20090501
  Receipt Date: 20090416
  Transmission Date: 20091009
  Serious: Yes (Hospitalization)
  Sender: FDA-Public Use
  Company Number: 2008S1011439

PATIENT
  Age: 33 Year
  Sex: Female

DRUGS (4)
  1. PRAMIN (METOCLOPRAMIDE) (10 MG) [Suspect]
     Indication: VOMITING IN PREGNANCY
     Dosage: 10 MG;Q6H;ORAL
     Route: 048
     Dates: start: 20080626, end: 20080601
  2. ESCITALOPRAM [Suspect]
     Indication: DEPRESSION
     Dosage: 10 MG;DAILY;ORAL
     Route: 048
     Dates: start: 20080101
  3. FOLIC ACID [Concomitant]
  4. LYSINE [Concomitant]

REACTIONS (4)
  - DRUG EXPOSURE DURING PREGNANCY [None]
  - INDUCED LABOUR [None]
  - PREMATURE LABOUR [None]
  - PREMATURE RUPTURE OF MEMBRANES [None]
